FAERS Safety Report 25451615 (Version 1)
Quarter: 2025Q2

REPORT INFORMATION
  Report Type: Spontaneous
  Country: AU (occurrence: AU)
  Receive Date: 20250618
  Receipt Date: 20250618
  Transmission Date: 20250717
  Serious: Yes (Hospitalization)
  Sender: CIPLA
  Company Number: AU-CIPLA (EU) LIMITED-2025AU07222

PATIENT

DRUGS (23)
  1. ESCITALOPRAM [Suspect]
     Active Substance: ESCITALOPRAM OXALATE
     Indication: Depressive symptom
     Route: 065
  2. ESCITALOPRAM [Suspect]
     Active Substance: ESCITALOPRAM OXALATE
     Indication: Persistent postural-perceptual dizziness
  3. DOXYLAMINE SUCCINATE [Suspect]
     Active Substance: DOXYLAMINE SUCCINATE
     Indication: Persistent postural-perceptual dizziness
     Route: 065
  4. AGOMELATINE [Suspect]
     Active Substance: AGOMELATINE
     Indication: Depressive symptom
     Route: 065
  5. AGOMELATINE [Suspect]
     Active Substance: AGOMELATINE
     Indication: Persistent postural-perceptual dizziness
     Route: 065
  6. BETAHISTINE [Suspect]
     Active Substance: BETAHISTINE
     Indication: Persistent postural-perceptual dizziness
     Route: 065
  7. CYPROHEPTADINE HYDROCHLORIDE [Suspect]
     Active Substance: CYPROHEPTADINE HYDROCHLORIDE
     Indication: Persistent postural-perceptual dizziness
     Route: 065
  8. DESVENLAFAXINE [Suspect]
     Active Substance: DESVENLAFAXINE
     Indication: Depressive symptom
     Route: 065
  9. DESVENLAFAXINE [Suspect]
     Active Substance: DESVENLAFAXINE
     Indication: Persistent postural-perceptual dizziness
     Route: 065
  10. MELATONIN [Suspect]
     Active Substance: MELATONIN
     Indication: Sleep disorder
     Route: 065
  11. MIRTAZAPINE [Suspect]
     Active Substance: MIRTAZAPINE
     Indication: Depressive symptom
     Route: 065
  12. MIRTAZAPINE [Suspect]
     Active Substance: MIRTAZAPINE
     Indication: Persistent postural-perceptual dizziness
     Route: 065
  13. OLANZAPINE [Suspect]
     Active Substance: OLANZAPINE
     Indication: Sleep disorder
     Route: 065
  14. OLANZAPINE [Suspect]
     Active Substance: OLANZAPINE
     Indication: Anxiety
     Route: 065
  15. PIZOTYLINE MALEATE [Suspect]
     Active Substance: PIZOTYLINE MALEATE
     Indication: Persistent postural-perceptual dizziness
     Route: 065
  16. PROCHLORPERAZINE [Suspect]
     Active Substance: PROCHLORPERAZINE
     Indication: Persistent postural-perceptual dizziness
     Route: 065
  17. PROPRANOLOL HYDROCHLORIDE [Suspect]
     Active Substance: PROPRANOLOL HYDROCHLORIDE
     Indication: Anxiety
     Route: 065
  18. SERTRALINE HYDROCHLORIDE [Suspect]
     Active Substance: SERTRALINE HYDROCHLORIDE
     Indication: Depressive symptom
     Route: 065
  19. SERTRALINE HYDROCHLORIDE [Suspect]
     Active Substance: SERTRALINE HYDROCHLORIDE
     Indication: Persistent postural-perceptual dizziness
  20. SUMATRIPTAN SUCCINATE [Suspect]
     Active Substance: SUMATRIPTAN SUCCINATE
     Indication: Persistent postural-perceptual dizziness
     Route: 065
  21. TEMAZEPAM [Suspect]
     Active Substance: TEMAZEPAM
     Indication: Sleep disorder
     Route: 065
  22. VENLAFAXINE HYDROCHLORIDE [Suspect]
     Active Substance: VENLAFAXINE HYDROCHLORIDE
     Indication: Depression
     Route: 065
  23. VENLAFAXINE HYDROCHLORIDE [Suspect]
     Active Substance: VENLAFAXINE HYDROCHLORIDE
     Indication: Persistent postural-perceptual dizziness
     Route: 065

REACTIONS (4)
  - Adverse event [Unknown]
  - Off label use [Unknown]
  - Drug ineffective for unapproved indication [Unknown]
  - Exposure during pregnancy [Unknown]
